FAERS Safety Report 24247697 (Version 1)
Quarter: 2024Q3

REPORT INFORMATION
  Report Type: Spontaneous
  Country: JP (occurrence: JP)
  Receive Date: 20240826
  Receipt Date: 20240826
  Transmission Date: 20241017
  Serious: Yes (Death, Hospitalization, Other)
  Sender: GENEYORK PHARMA
  Company Number: JP-GENEYORK-2024PPLIT00049

PATIENT
  Age: 52 Year
  Sex: Male

DRUGS (4)
  1. PREDNISONE [Suspect]
     Active Substance: PREDNISONE
     Indication: Peripheral T-cell lymphoma unspecified
     Route: 065
  2. CYCLOPHOSPHAMIDE [Suspect]
     Active Substance: CYCLOPHOSPHAMIDE
     Indication: Peripheral T-cell lymphoma unspecified
     Route: 065
  3. DOXORUBICIN [Suspect]
     Active Substance: DOXORUBICIN
     Indication: Peripheral T-cell lymphoma unspecified
     Route: 065
  4. VINCRISTINE [Suspect]
     Active Substance: VINCRISTINE
     Indication: Peripheral T-cell lymphoma unspecified
     Route: 065

REACTIONS (5)
  - Multiple organ dysfunction syndrome [Fatal]
  - T-cell lymphoma [Unknown]
  - Fungal peritonitis [Unknown]
  - Epstein-Barr virus infection reactivation [Unknown]
  - Sepsis [Unknown]
